FAERS Safety Report 12068328 (Version 1)
Quarter: 2016Q1

REPORT INFORMATION
  Report Type: Spontaneous
  Country: US (occurrence: US)
  Receive Date: 20160211
  Receipt Date: 20160211
  Transmission Date: 20160526
  Serious: No
  Sender: FDA-Public Use
  Company Number: US-SMITH AND NEPHEW, INC-2015SMT00526

PATIENT
  Age: 78 Year
  Sex: Female
  Weight: 117.91 kg

DRUGS (8)
  1. UNSPECIFIED THIAZIDE [Concomitant]
     Active Substance: UNSPECIFIED INGREDIENT
  2. UNSPECIFIED THYROID MEDICATION [Concomitant]
     Active Substance: UNSPECIFIED INGREDIENT
  3. TYLENOL [Concomitant]
     Active Substance: ACETAMINOPHEN
  4. MULTIVITAMIN [Concomitant]
     Active Substance: VITAMINS
  5. COQ10 [Concomitant]
     Active Substance: UBIDECARENONE
  6. REGRANEX [Suspect]
     Active Substance: BECAPLERMIN
     Indication: WOUND
     Dosage: UNK UNK, EVERY 48 HOURS
     Route: 061
     Dates: start: 20151106
  7. UNSPECIFIED BLOOD PRESSURE MEDICATION [Concomitant]
     Active Substance: UNSPECIFIED INGREDIENT
  8. UNSPECIFIED NUTRITIONAL SUPPLEMENT [Concomitant]
     Dosage: UNK, AS NEEDED

REACTIONS (3)
  - Off label use [Unknown]
  - Incorrect drug administration duration [Unknown]
  - Application site pain [Recovered/Resolved]

NARRATIVE: CASE EVENT DATE: 20151106
